FAERS Safety Report 24298874 (Version 1)
Quarter: 2024Q3

REPORT INFORMATION
  Report Type: Spontaneous
  Country: US (occurrence: None)
  Receive Date: 20240909
  Receipt Date: 20240909
  Transmission Date: 20241016
  Serious: Yes (unspecified)
  Sender: Public
  Company Number: None

PATIENT
  Age: 15 Year
  Sex: Female

DRUGS (1)
  1. OMNITROPE [Suspect]
     Active Substance: SOMATROPIN
     Dosage: FREQUENCY : DAILY;?

REACTIONS (6)
  - Throat irritation [None]
  - Back pain [None]
  - Pyrexia [None]
  - Chest discomfort [None]
  - Throat tightness [None]
  - Urticaria [None]
